FAERS Safety Report 9976727 (Version 1)
Quarter: 2014Q1

REPORT INFORMATION
  Report Type: Report from Study
  Country: US (occurrence: US)
  Receive Date: 20140306
  Receipt Date: 20140306
  Transmission Date: 20141002
  Serious: Yes (Other)
  Sender: FDA-Public Use
  Company Number: US-ABBVIE-13P-163-1164426-00

PATIENT
  Age: 46 Year
  Sex: Female

DRUGS (1)
  1. HUMIRA [Suspect]
     Indication: PSORIASIS
     Dates: start: 200810, end: 201302

REACTIONS (3)
  - Injury [Recovered/Resolved]
  - Road traffic accident [Recovered/Resolved]
  - Psoriasis [Not Recovered/Not Resolved]
